FAERS Safety Report 5833603-8 (Version None)
Quarter: 2008Q3

REPORT INFORMATION
  Report Type: 
  Country: None (occurrence: None)
  Receive Date: 20080805
  Receipt Date: 20080730
  Transmission Date: 20090109
  Serious: Yes (Death, Hospitalization, Other)
  Sender: FDA-Public Use
  Company Number: US-AVENTIS-200814819US

PATIENT

DRUGS (1)
  1. LOVENOX [Suspect]
     Dosage: DOSE: UNK
     Route: 042

REACTIONS (4)
  - DRUG DISPENSING ERROR [None]
  - HAEMORRHAGE [None]
  - INTRA-ABDOMINAL HAEMATOMA [None]
  - RENAL FAILURE [None]
